FAERS Safety Report 13637981 (Version 1)
Quarter: 2017Q2

REPORT INFORMATION
  Report Type: Report from Study
  Country: BR (occurrence: BR)
  Receive Date: 20170609
  Receipt Date: 20170609
  Transmission Date: 20170830
  Serious: Yes (Other)
  Sender: FDA-Public Use
  Company Number: PHHY2017BR081756

PATIENT
  Age: 60 Year
  Sex: Female

DRUGS (5)
  1. CIPROFLOXACIN. [Suspect]
     Active Substance: CIPROFLOXACIN
     Indication: PRODUCT USED FOR UNKNOWN INDICATION
     Route: 065
  2. RIFAMPICIN [Concomitant]
     Active Substance: RIFAMPIN
     Indication: PRODUCT USED FOR UNKNOWN INDICATION
     Route: 065
  3. ISONIAZID. [Suspect]
     Active Substance: ISONIAZID
     Indication: PRODUCT USED FOR UNKNOWN INDICATION
     Route: 065
  4. OXYGEN. [Concomitant]
     Active Substance: OXYGEN
     Indication: PRODUCT USED FOR UNKNOWN INDICATION
     Route: 065
  5. ULTIBRO BREEZHALER [Suspect]
     Active Substance: GLYCOPYRRONIUM\INDACATEROL
     Indication: CHRONIC OBSTRUCTIVE PULMONARY DISEASE
     Dosage: 1 DF (110MCG + 50MCG), QD
     Route: 065

REACTIONS (22)
  - Myocardial infarction [Unknown]
  - Dyspnoea [Recovering/Resolving]
  - Sputum discoloured [Unknown]
  - Malaise [Unknown]
  - Cough [Recovering/Resolving]
  - Arthralgia [Unknown]
  - Anxiety [Unknown]
  - Liver disorder [Unknown]
  - Chest discomfort [Unknown]
  - Tuberculin test positive [Unknown]
  - Lung infection [Unknown]
  - Oxygen saturation decreased [Unknown]
  - Chronic obstructive pulmonary disease [Unknown]
  - Fatigue [Unknown]
  - Axial spondyloarthritis [Unknown]
  - Panic disorder [Unknown]
  - Coronary artery insufficiency [Unknown]
  - Secretion discharge [Recovering/Resolving]
  - Syncope [Unknown]
  - Troponin increased [Unknown]
  - Sleep apnoea syndrome [Unknown]
  - Blood creatine phosphokinase increased [Unknown]

NARRATIVE: CASE EVENT DATE: 201507
